FAERS Safety Report 15680019 (Version 6)
Quarter: 2020Q4

REPORT INFORMATION
  Report Type: Other
  Country: IT (occurrence: IT)
  Receive Date: 20181203
  Receipt Date: 20201027
  Transmission Date: 20210113
  Serious: Yes (Hospitalization, Other)
  Sender: FDA-Public Use
  Company Number: IT-ROCHE-2218746

PATIENT
  Age: 58 Year
  Sex: Female

DRUGS (8)
  1. OCRELIZUMAB. [Suspect]
     Active Substance: OCRELIZUMAB
     Indication: PRIMARY PROGRESSIVE MULTIPLE SCLEROSIS
     Dosage: SUBSEQUENT DOSE: 06/FEB/2020
     Route: 042
     Dates: start: 20171127
  2. DISERINAL [Concomitant]
     Dosage: 1 TABLET AT NOON
     Route: 048
     Dates: start: 20200516, end: 20200522
  3. ZITHROMAX [Concomitant]
     Active Substance: AZITHROMYCIN DIHYDRATE
     Route: 048
     Dates: start: 20200516, end: 20200521
  4. GABAPENTIN. [Concomitant]
     Active Substance: GABAPENTIN
     Route: 048
     Dates: start: 20200516, end: 20200522
  5. ENOXAPARIN [Concomitant]
     Active Substance: ENOXAPARIN
     Route: 058
  6. ENTEROGERMINA [Concomitant]
     Active Substance: BACILLUS SUBTILIS
     Dosage: 1 VIAL
     Route: 048
     Dates: start: 20200521, end: 20200522
  7. ROCEPHIN [Concomitant]
     Active Substance: CEFTRIAXONE SODIUM
     Route: 042
     Dates: start: 20200516, end: 20200521
  8. OXYBUTYNIN HYDROCHLORIDE [Concomitant]
     Active Substance: OXYBUTYNIN CHLORIDE
     Dosage: HALF TABLET TWICE A DAY
     Route: 048
     Dates: start: 20200516, end: 20200522

REACTIONS (9)
  - Bacterial vulvovaginitis [Recovering/Resolving]
  - Headache [Recovered/Resolved]
  - Pyrexia [Recovered/Resolved]
  - Cough [Unknown]
  - Escherichia vaginitis [Recovering/Resolving]
  - Pyrexia [Recovered/Resolved]
  - Diarrhoea [Unknown]
  - Pneumonia [Recovered/Resolved]
  - Bronchitis [Recovered/Resolved]

NARRATIVE: CASE EVENT DATE: 201807
